FAERS Safety Report 23124693 (Version 1)
Quarter: 2023Q4

REPORT INFORMATION
  Report Type: Spontaneous
  Country: US (occurrence: None)
  Receive Date: 20231029
  Receipt Date: 20231029
  Transmission Date: 20240109
  Serious: Yes (Life-Threatening)
  Sender: FDA-Public Use
  Company Number: None

PATIENT
  Age: 51 Year
  Sex: Female

DRUGS (1)
  1. CEFAZOLIN [Suspect]
     Active Substance: CEFAZOLIN
     Route: 040
     Dates: start: 20230914, end: 20230914

REACTIONS (2)
  - Drug hypersensitivity [None]
  - Anaphylactic reaction [None]

NARRATIVE: CASE EVENT DATE: 20230914
